FAERS Safety Report 20501239 (Version 4)
Quarter: 2022Q4

REPORT INFORMATION
  Report Type: Spontaneous
  Country: US (occurrence: US)
  Receive Date: 20220222
  Receipt Date: 20221012
  Transmission Date: 20230112
  Serious: No
  Sender: FDA-Public Use
  Company Number: US-BEH-2022142489

PATIENT
  Sex: Female

DRUGS (4)
  1. HIZENTRA [Suspect]
     Active Substance: HUMAN IMMUNOGLOBULIN G
     Indication: Hypogammaglobulinaemia
     Dosage: 8 GRAM, QOW
     Route: 058
     Dates: start: 201807
  2. HIZENTRA [Suspect]
     Active Substance: HUMAN IMMUNOGLOBULIN G
     Dosage: 16 GRAM, QMT
     Route: 058
  3. HIZENTRA [Suspect]
     Active Substance: HUMAN IMMUNOGLOBULIN G
     Dosage: 8 GRAM, QOW
     Route: 058
     Dates: start: 20170619
  4. HIZENTRA [Suspect]
     Active Substance: HUMAN IMMUNOGLOBULIN G
     Dosage: 16 GRAM, QMT
     Route: 058
     Dates: start: 202207

REACTIONS (19)
  - Headache [Unknown]
  - Infusion site swelling [Unknown]
  - Anal incontinence [Unknown]
  - Somnolence [Unknown]
  - Irritable bowel syndrome [Unknown]
  - No adverse event [Unknown]
  - Therapy change [Unknown]
  - No adverse event [Unknown]
  - Wrong technique in product usage process [Unknown]
  - Infection [Unknown]
  - Urine output decreased [Unknown]
  - Decreased appetite [Unknown]
  - Dyspnoea [Unknown]
  - Peripheral swelling [Unknown]
  - Joint swelling [Unknown]
  - Pain [Unknown]
  - Pruritus [Unknown]
  - Swelling [Unknown]
  - Headache [Unknown]
